FAERS Safety Report 4629699-1 (Version None)
Quarter: 2005Q1

REPORT INFORMATION
  Report Type: 
  Country: None (occurrence: None)
  Receive Date: 20050107
  Receipt Date: 20041005
  Transmission Date: 20050727
  Serious: No
  Sender: FDA-Public Use
  Company Number: 234279K04USA

PATIENT
  Age: 57 Year
  Sex: Female

DRUGS (3)
  1. REBIF [Suspect]
     Indication: MULTIPLE SCLEROSIS
     Dosage: 22 MCG, 3 IN 1 WEEKS,
     Dates: start: 20030101
  2. AMANTADINE (AMANTADINE) [Concomitant]
  3. PROVIGIL [Concomitant]

REACTIONS (7)
  - DRY EYE [None]
  - LEUKOPENIA [None]
  - MUCOUS MEMBRANE DISORDER [None]
  - SKIN DISORDER [None]
  - STOMATITIS [None]
  - WHITE BLOOD CELL COUNT DECREASED [None]
  - XEROPHTHALMIA [None]
